FAERS Safety Report 5954113-3 (Version None)
Quarter: 2008Q4

REPORT INFORMATION
  Report Type: 
  Country: None (occurrence: None)
  Receive Date: 20081117
  Receipt Date: 20081107
  Transmission Date: 20090506
  Serious: Yes (Other)
  Sender: FDA-Public Use
  Company Number: NO-RANBAXY-2008RR-19175

PATIENT
  Age: 43 Year
  Sex: Male

DRUGS (5)
  1. ATORVASTATIN CALCIUM [Suspect]
     Indication: HYPERLIPIDAEMIA
     Dosage: 10 MG, QD
  2. ATORVASTATIN CALCIUM [Suspect]
     Dosage: 20 MG, QD
  3. ATORVASTATIN CALCIUM [Suspect]
     Dosage: 40 MG, QD
  4. PRAVASTATIN [Suspect]
     Indication: MYOCARDIAL INFARCTION
  5. EZETIMIBE [Concomitant]
     Indication: HYPERLIPIDAEMIA

REACTIONS (1)
  - MYASTHENIA GRAVIS [None]
